FAERS Safety Report 11539139 (Version 1)
Quarter: 2015Q3

REPORT INFORMATION
  Report Type: Spontaneous
  Country: DE (occurrence: DE)
  Receive Date: 20150923
  Receipt Date: 20150923
  Transmission Date: 20151125
  Serious: Yes (Other)
  Sender: FDA-Public Use
  Company Number: DE-ROCHE-1637129

PATIENT
  Age: 80 Year
  Sex: Male
  Weight: 69 kg

DRUGS (8)
  1. FALITHROM [Concomitant]
     Active Substance: PHENPROCOUMON
     Indication: HEART VALVE REPLACEMENT
     Route: 065
  2. TOREM 10 TABLETS [Concomitant]
     Indication: CARDIAC FAILURE
     Dosage: 1-1-0
     Route: 048
  3. ALENDRONIC ACID [Concomitant]
     Active Substance: ALENDRONIC ACID
     Indication: OSTEOPOROSIS
     Route: 048
  4. ESBRIET [Suspect]
     Active Substance: PIRFENIDONE
     Indication: PULMONARY FIBROSIS
     Route: 048
     Dates: start: 20150618
  5. AQUAPHOR [Concomitant]
     Active Substance: PETROLATUM
     Indication: CARDIAC FAILURE
     Dosage: 1-0-0
     Route: 048
  6. SIMVASTATIN. [Concomitant]
     Active Substance: SIMVASTATIN
     Indication: CORONARY ARTERY DISEASE
     Dosage: 0-0-0-1
     Route: 048
  7. ACC 600 [Concomitant]
     Indication: PULMONARY FIBROSIS
     Dosage: 1-1-0
     Route: 048
  8. OXYGEN. [Concomitant]
     Active Substance: OXYGEN
     Indication: PULMONARY FIBROSIS
     Dosage: 2 L/MIN
     Route: 055

REACTIONS (4)
  - Anaemia [Not Recovered/Not Resolved]
  - Weight decreased [Not Recovered/Not Resolved]
  - Constipation [Not Recovered/Not Resolved]
  - Decreased appetite [Not Recovered/Not Resolved]

NARRATIVE: CASE EVENT DATE: 20150818
